FAERS Safety Report 4808533-0 (Version None)
Quarter: 2005Q4

REPORT INFORMATION
  Report Type: 
  Country: None (occurrence: None)
  Receive Date: 20051021
  Receipt Date: 20040227
  Transmission Date: 20060501
  Serious: No
  Sender: FDA-Public Use
  Company Number: FR_040203666

PATIENT
  Age: 50 Year
  Sex: Female

DRUGS (1)
  1. ZYPREXA [Suspect]
     Indication: BIPOLAR I DISORDER
     Dosage: 5 MG/1 DAY
     Dates: start: 20000101

REACTIONS (7)
  - ALANINE AMINOTRANSFERASE INCREASED [None]
  - GAMMA-GLUTAMYLTRANSFERASE INCREASED [None]
  - HYPERCHOLESTEROLAEMIA [None]
  - HYPERTRIGLYCERIDAEMIA [None]
  - LYMPHOCYTOSIS [None]
  - NEUTROPENIA [None]
  - WEIGHT INCREASED [None]
